FAERS Safety Report 21890594 (Version 1)
Quarter: 2023Q1

REPORT INFORMATION
  Report Type: Report from Study
  Country: DK (occurrence: DK)
  Receive Date: 20230120
  Receipt Date: 20230120
  Transmission Date: 20230418
  Serious: Yes (Other)
  Sender: FDA-Public Use
  Company Number: DK-MYLANLABS-2023M1006533

PATIENT

DRUGS (4)
  1. PANTOPRAZOLE [Suspect]
     Active Substance: PANTOPRAZOLE
     Indication: Product used for unknown indication
     Dosage: UNK (GRAVITY-BASED INFUSION)
     Route: 058
  2. ONDANSETRON [Suspect]
     Active Substance: ONDANSETRON
     Indication: Product used for unknown indication
     Dosage: UNK (CONTINUOUS SUBCUTANEOUS INFUSION)
     Route: 058
  3. DEXAMETHASONE [Suspect]
     Active Substance: DEXAMETHASONE
     Indication: Product used for unknown indication
     Dosage: UNK (CONTINUOUS SUBCUTANEOUS INFUSION)
     Route: 058
  4. MORPHINE [Suspect]
     Active Substance: MORPHINE
     Indication: Product used for unknown indication
     Dosage: UNK (CONTINUOUS SUBCUTANEOUS INFUSION)
     Route: 058

REACTIONS (3)
  - Infusion site pain [Recovered/Resolved]
  - Off label use [Recovered/Resolved]
  - Injection related reaction [Recovered/Resolved]
